FAERS Safety Report 9496897 (Version 1)
Quarter: 2013Q3

REPORT INFORMATION
  Report Type: Spontaneous
  Country: US (occurrence: None)
  Receive Date: 20130903
  Receipt Date: 20130903
  Transmission Date: 20140515
  Serious: Yes (Other)
  Sender: FDA-Public Use
  Company Number: None

PATIENT
  Age: 44 Year
  Sex: Male
  Weight: 58.06 kg

DRUGS (1)
  1. LACTAID [Suspect]
     Indication: LACTOSE INTOLERANCE
     Dosage: AS NEEDED TAKEN BY MOUTH
     Route: 048
     Dates: start: 20130828

REACTIONS (3)
  - Vomiting [None]
  - Diarrhoea [None]
  - Malaise [None]
